FAERS Safety Report 5209814-1 (Version None)
Quarter: 2006Q4

REPORT INFORMATION
  Report Type: 
  Country: None (occurrence: None)
  Receive Date: 20061130
  Receipt Date: 20060901
  Transmission Date: 20070319
  Serious: Yes (Hospitalization, Other)
  Sender: FDA-Public Use
  Company Number: 2006080232

PATIENT
  Age: 52 Year
  Sex: Female
  Weight: 90.7194 kg

DRUGS (10)
  1. ZYVOX [Suspect]
     Indication: OSTEOMYELITIS
     Dosage: 1200 MG (600 MG, 2 IN 1 D), ORAL
     Route: 048
     Dates: start: 20060328, end: 20060504
  2. ALL OTHER THERAPEUTIC PRODUCTS (ALL OTHER THERAPEUTIC PRODUCTS) [Concomitant]
  3. LEVAQUIN [Concomitant]
  4. NEXIUM [Concomitant]
  5. METFORMIN HCL [Concomitant]
  6. ZOCOR [Concomitant]
  7. SINGULAIR [Concomitant]
  8. AVALIDE [Concomitant]
  9. ADVAIR DISKUS 100/50 [Concomitant]
  10. AMITRIPTYLINE HCL [Concomitant]

REACTIONS (4)
  - APLASTIC ANAEMIA [None]
  - BONE MARROW FAILURE [None]
  - HAEMATOCRIT DECREASED [None]
  - HAEMOGLOBIN DECREASED [None]
